FAERS Safety Report 12242195 (Version 1)
Quarter: 2016Q2

REPORT INFORMATION
  Report Type: Spontaneous
  Country: US (occurrence: None)
  Receive Date: 20160405
  Receipt Date: 20160405
  Transmission Date: 20160815
  Serious: Yes (Other)
  Sender: FDA-Public Use
  Company Number: None

PATIENT
  Age: 82 Year
  Sex: Male
  Weight: 82.4 kg

DRUGS (2)
  1. HYDROCHLOROTHIAZIDE/TRIAMTERENE [Suspect]
     Active Substance: HYDROCHLOROTHIAZIDE\TRIAMTERENE
     Indication: HYPERTENSION
     Dosage: 25/37.5 MG PO
     Route: 048
     Dates: start: 20110307
  2. IDEALALISIB [Suspect]
     Active Substance: IDELALISIB
     Indication: LYMPHOMA
     Route: 048
     Dates: start: 20151207

REACTIONS (5)
  - Lymphoma [None]
  - Condition aggravated [None]
  - Blood urea increased [None]
  - Obstruction [None]
  - Blood creatinine increased [None]

NARRATIVE: CASE EVENT DATE: 20160121
